FAERS Safety Report 6070018-4 (Version None)
Quarter: 2009Q1

REPORT INFORMATION
  Report Type: 
  Country: None (occurrence: None)
  Receive Date: 20090209
  Receipt Date: 20090129
  Transmission Date: 20090719
  Serious: Yes (Other)
  Sender: FDA-Public Use
  Company Number: PHHY2009DE04084

PATIENT
  Sex: Male

DRUGS (2)
  1. EXELON [Suspect]
     Indication: DEMENTIA
     Dosage: 3 TO 4.5 MG DAILY
     Route: 048
  2. EXELON [Suspect]
     Indication: PARKINSON'S DISEASE

REACTIONS (5)
  - AGGRESSION [None]
  - DRUG INEFFECTIVE [None]
  - HYPERSEXUALITY [None]
  - NAUSEA [None]
  - WEIGHT DECREASED [None]
